FAERS Safety Report 5227974-3 (Version None)
Quarter: 2007Q1

REPORT INFORMATION
  Report Type: 
  Country: None (occurrence: None)
  Receive Date: 20061201
  Receipt Date: 20060925
  Transmission Date: 20070707
  Serious: Yes (Other)
  Sender: FDA-Public Use
  Company Number: 2006-148182-NL

PATIENT
  Age: 35 Year
  Sex: Female
  Weight: 88.5 kg

DRUGS (4)
  1. NUVARING [Suspect]
     Indication: ANOVULATORY CYCLE
     Dosage: VAGINAL, 3 WEEKS IN, REPLACE (NO RING FREE WEEK)
     Route: 067
     Dates: start: 20030401, end: 20031001
  2. NUVARING [Suspect]
     Indication: CONTRACEPTION
     Dosage: VAGINAL, 3 WEEKS IN, REPLACE (NO RING FREE WEEK)
     Route: 067
     Dates: start: 20030401, end: 20031001
  3. OPIOIDS [Concomitant]
  4. MEDS FOR FIBROMYALGIA [Concomitant]

REACTIONS (3)
  - PULMONARY EMBOLISM [None]
  - THROMBOSIS [None]
  - VAGINAL CONTRACEPTIVE DEVICE EXPELLED [None]
